FAERS Safety Report 6718421-0 (Version None)
Quarter: 2010Q2

REPORT INFORMATION
  Report Type: 
  Country: None (occurrence: None)
  Receive Date: 20100504
  Receipt Date: 20100416
  Transmission Date: 20101027
  Serious: Yes (Hospitalization, Other)
  Sender: FDA-Public Use
  Company Number: 231647J10USA

PATIENT
  Age: 60 Year
  Sex: Female
  Weight: 111 kg

DRUGS (7)
  1. REBIF [Suspect]
     Indication: MULTIPLE SCLEROSIS
     Dosage: 44 MCG, 3 IN 1 WK, SUBCUTANEOUS
     Route: 058
     Dates: start: 20020101, end: 20100301
  2. LITHIUM CARBONATE [Concomitant]
  3. COGENTION (BENZATROPINE MESILATE) [Concomitant]
  4. KLONOPIN [Concomitant]
  5. ATIVAN [Concomitant]
  6. DEPAKOTE [Concomitant]
  7. ZIPRASIDONE HCL [Concomitant]

REACTIONS (7)
  - CARDIAC FAILURE CONGESTIVE [None]
  - CONVULSION [None]
  - DIALYSIS [None]
  - ECONOMIC PROBLEM [None]
  - MULTIPLE SCLEROSIS RELAPSE [None]
  - PNEUMONIA [None]
  - RENAL FAILURE [None]
